FAERS Safety Report 17257419 (Version 2)
Quarter: 2020Q1

REPORT INFORMATION
  Report Type: Spontaneous
  Country: TW (occurrence: TW)
  Receive Date: 20200110
  Receipt Date: 20200129
  Transmission Date: 20200409
  Serious: Yes (Other)
  Sender: FDA-Public Use
  Company Number: NVSC2020TW004090

PATIENT
  Age: 69 Year
  Sex: Female

DRUGS (6)
  1. AVASTIN [Concomitant]
     Active Substance: BEVACIZUMAB
     Dosage: 440 MG
     Route: 042
     Dates: start: 20190910, end: 20200103
  2. FOLFIRI [Suspect]
     Active Substance: FLUOROURACIL\IRINOTECAN\LEUCOVORIN
     Indication: ADENOCARCINOMA OF COLON
     Dosage: UNK
     Route: 065
     Dates: start: 20190910, end: 20200103
  3. FLUOROURACIL. [Suspect]
     Active Substance: FLUOROURACIL
     Indication: ADENOCARCINOMA OF COLON
     Dosage: 5348 MG, UNKNOWN
     Route: 042
     Dates: start: 20190910, end: 20200103
  4. IRINOTECAN [Suspect]
     Active Substance: IRINOTECAN
     Indication: ADENOCARCINOMA OF COLON
     Dosage: 334 MG, UNKNOWN
     Route: 042
     Dates: start: 20190910, end: 20200103
  5. LEUCOVORIN. [Concomitant]
     Active Substance: LEUCOVORIN
     Indication: ADENOCARCINOMA OF COLON
     Dosage: 800 MG, UNKNOWN
     Route: 042
     Dates: start: 20190910, end: 20200103
  6. AVASTIN [Concomitant]
     Active Substance: BEVACIZUMAB
     Indication: ADENOCARCINOMA OF COLON
     Dosage: 450 MG, UNKNOWN
     Route: 042
     Dates: start: 20190910, end: 20200103

REACTIONS (5)
  - Adenocarcinoma of colon [Unknown]
  - Metastases to bone [Unknown]
  - Metastases to spine [Unknown]
  - Second primary malignancy [Unknown]
  - Malignant neoplasm progression [Unknown]

NARRATIVE: CASE EVENT DATE: 20200102
